FAERS Safety Report 18736875 (Version 6)
Quarter: 2022Q4

REPORT INFORMATION
  Report Type: Spontaneous
  Country: US (occurrence: US)
  Receive Date: 20210113
  Receipt Date: 20221228
  Transmission Date: 20230113
  Serious: Yes (Other)
  Sender: FDA-Public Use
  Company Number: US-PFIZER INC-2021017683

PATIENT
  Age: 63 Year
  Sex: Female

DRUGS (5)
  1. IBRANCE [Suspect]
     Active Substance: PALBOCICLIB
     Dosage: 125 MG, CYCLIC (3 WEEKS ON 1 WEEK OFF)
     Dates: start: 20201217
  2. IBRANCE [Suspect]
     Active Substance: PALBOCICLIB
     Dosage: 125 MG
     Dates: start: 20201231
  3. IBRANCE [Suspect]
     Active Substance: PALBOCICLIB
     Dosage: 125 MG
     Dates: start: 20200712
  4. IBRANCE [Suspect]
     Active Substance: PALBOCICLIB
     Dosage: 100 MG
  5. IBRANCE [Suspect]
     Active Substance: PALBOCICLIB
     Dosage: 100 MG
     Dates: start: 20220206

REACTIONS (3)
  - Cardiac operation [Unknown]
  - Fatigue [Recovered/Resolved]
  - White blood cell count decreased [Recovered/Resolved]
